FAERS Safety Report 14942564 (Version 1)
Quarter: 2018Q2

REPORT INFORMATION
  Report Type: Spontaneous
  Country: US (occurrence: US)
  Receive Date: 20180528
  Receipt Date: 20180528
  Transmission Date: 20180711
  Serious: Yes (Hospitalization)
  Sender: FDA-Public Use
  Company Number: US-ROCHE-2127898

PATIENT
  Sex: Male
  Weight: 90.8 kg

DRUGS (5)
  1. LISINOPRIL. [Concomitant]
     Active Substance: LISINOPRIL
     Route: 065
  2. KLONOPIN [Suspect]
     Active Substance: CLONAZEPAM
     Indication: MUSCLE SPASMS
  3. KLONOPIN [Suspect]
     Active Substance: CLONAZEPAM
     Indication: BURNING SENSATION
     Route: 065
  4. CRESTOR [Concomitant]
     Active Substance: ROSUVASTATIN CALCIUM
     Route: 065
  5. NEURONTIN [Concomitant]
     Active Substance: GABAPENTIN
     Route: 065

REACTIONS (5)
  - Guillain-Barre syndrome [Unknown]
  - Intentional product use issue [Unknown]
  - Off label use [Unknown]
  - Prostatic disorder [Unknown]
  - Drug dependence [Unknown]
